FAERS Safety Report 5988176-6 (Version None)
Quarter: 2008Q4

REPORT INFORMATION
  Report Type: 
  Country: None (occurrence: None)
  Receive Date: 20081203
  Receipt Date: 20081117
  Transmission Date: 20090506
  Serious: Yes (Hospitalization)
  Sender: FDA-Public Use
  Company Number: 8039794

PATIENT
  Age: 61 Year
  Sex: Male

DRUGS (5)
  1. PREDNISOLONE [Suspect]
     Indication: IMMUNOSUPPRESSION
     Dosage: 10 MG/D
  2. CELLCEPT [Suspect]
     Indication: IMMUNOSUPPRESSION
     Dosage: 1 G 2/D
  3. DACLIZUMAB [Suspect]
     Indication: IMMUNOSUPPRESSION
  4. MYFORTIC /01275101/ [Suspect]
     Indication: IMMUNOSUPPRESSION
  5. NEORAL [Suspect]
     Indication: IMMUNOSUPPRESSION

REACTIONS (14)
  - CAMPYLOBACTER INFECTION [None]
  - CULTURE STOOL POSITIVE [None]
  - CYTOMEGALOVIRUS COLITIS [None]
  - DEHYDRATION [None]
  - HYPOTENSION [None]
  - LIVER FUNCTION TEST ABNORMAL [None]
  - METABOLIC ACIDOSIS [None]
  - NO THERAPEUTIC RESPONSE [None]
  - RENAL CYST [None]
  - RENAL FAILURE ACUTE [None]
  - THROMBOCYTOPENIA [None]
  - VASCULITIS [None]
  - WEIGHT [None]
  - WEIGHT DECREASED [None]
